FAERS Safety Report 9246536 (Version 6)
Quarter: 2017Q1

REPORT INFORMATION
  Report Type: Spontaneous
  Country: US (occurrence: US)
  Receive Date: 20130422
  Receipt Date: 20170220
  Transmission Date: 20170429
  Serious: Yes (Hospitalization, Other)
  Sender: FDA-Public Use
  Company Number: US-009507513-1304USA006780

PATIENT
  Sex: Female
  Weight: 68 kg

DRUGS (7)
  1. ALENDRONATE SODIUM. [Suspect]
     Active Substance: ALENDRONATE SODIUM
     Indication: OSTEOPOROSIS
     Dosage: 70 MG, QW
     Route: 048
     Dates: start: 20080327, end: 200806
  2. FOSAMAX [Suspect]
     Active Substance: ALENDRONATE SODIUM
     Indication: OSTEOPOROSIS
     Dosage: 70 MG, QW
     Route: 048
     Dates: start: 20070910, end: 200803
  3. ALENDRONATE SODIUM. [Suspect]
     Active Substance: ALENDRONATE SODIUM
     Indication: OSTEOPOROSIS
     Dosage: 70 MG, QW
     Route: 048
     Dates: start: 20080630, end: 200809
  4. ALENDRONATE SODIUM. [Suspect]
     Active Substance: ALENDRONATE SODIUM
     Indication: OSTEOPENIA
     Dosage: 70 MG, QW
     Route: 048
     Dates: start: 20100326, end: 201006
  5. ALENDRONATE SODIUM. [Suspect]
     Active Substance: ALENDRONATE SODIUM
     Indication: OSTEOPENIA
     Dosage: 70 MG, QW
     Route: 048
     Dates: start: 20080923, end: 201003
  6. ALENDRONATE SODIUM. [Suspect]
     Active Substance: ALENDRONATE SODIUM
     Dosage: 70 MG, QW
     Route: 048
     Dates: start: 20100626, end: 201102
  7. FOSAMAX [Suspect]
     Active Substance: ALENDRONATE SODIUM
     Indication: OSTEOPENIA
     Dosage: UNK
     Route: 048
     Dates: start: 19990930

REACTIONS (34)
  - Hip surgery [Unknown]
  - Asthma [Unknown]
  - Limb mass [Unknown]
  - Hypertension [Not Recovered/Not Resolved]
  - Adverse event [Not Recovered/Not Resolved]
  - Cardiac failure [Unknown]
  - Osteoarthritis [Unknown]
  - Gastrooesophageal reflux disease [Not Recovered/Not Resolved]
  - Gastric ulcer [Unknown]
  - Closed fracture manipulation [Unknown]
  - Malignant melanoma [Unknown]
  - Chronic obstructive pulmonary disease [Not Recovered/Not Resolved]
  - Body height decreased [Unknown]
  - Lymphadenectomy [Unknown]
  - Haemorrhagic anaemia [Unknown]
  - Back pain [Not Recovered/Not Resolved]
  - Hip arthroplasty [Unknown]
  - Anxiety [Not Recovered/Not Resolved]
  - Hypercholesterolaemia [Not Recovered/Not Resolved]
  - Cardiac disorder [Not Recovered/Not Resolved]
  - Rheumatoid arthritis [Unknown]
  - Cystitis [Unknown]
  - Skin graft [Unknown]
  - Skin neoplasm excision [Unknown]
  - Low turnover osteopathy [Unknown]
  - Cardiac failure congestive [Unknown]
  - Calcium deficiency [Unknown]
  - Appendicectomy [Unknown]
  - Back pain [Unknown]
  - Hip surgery [Unknown]
  - Radius fracture [Unknown]
  - Femur fracture [Unknown]
  - Osteoarthritis [Unknown]
  - Adverse event [Unknown]

NARRATIVE: CASE EVENT DATE: 2004
